FAERS Safety Report 6084053-3 (Version None)
Quarter: 2009Q1

REPORT INFORMATION
  Report Type: 
  Country: None (occurrence: None)
  Receive Date: 20090217
  Receipt Date: 20090217
  Transmission Date: 20090719
  Serious: Yes (Other)
  Sender: FDA-Public Use
  Company Number: None

PATIENT
  Age: 42 Year
  Sex: Female
  Weight: 90.7194 kg

DRUGS (3)
  1. FENTANYL TRANSDERMAL SYSTEM [Suspect]
     Indication: BACK PAIN
     Dosage: 1 PATCH 48 HOURS TRANSDERMAL
     Route: 062
     Dates: start: 20090115, end: 20090210
  2. FENTANYL TRANSDERMAL SYSTEM [Suspect]
     Indication: PAIN IN EXTREMITY
     Dosage: 1 PATCH 48 HOURS TRANSDERMAL
     Route: 062
     Dates: start: 20090115, end: 20090210
  3. FENTANYL TRANSDERMAL SYSTEM [Suspect]
     Indication: SURGERY
     Dosage: 1 PATCH 48 HOURS TRANSDERMAL
     Route: 062
     Dates: start: 20090115, end: 20090210

REACTIONS (5)
  - DEPRESSION [None]
  - DRUG EFFECT DECREASED [None]
  - MOOD ALTERED [None]
  - PAIN [None]
  - PRODUCT QUALITY ISSUE [None]
